FAERS Safety Report 13140061 (Version 1)
Quarter: 2017Q1

REPORT INFORMATION
  Report Type: Spontaneous
  Country: US (occurrence: US)
  Receive Date: 20170123
  Receipt Date: 20170123
  Transmission Date: 20170428
  Serious: No
  Sender: FDA-Public Use
  Company Number: US-HERITAGE PHARMACEUTICALS-2016HTG00075

PATIENT
  Sex: Male
  Weight: 71.2 kg

DRUGS (1)
  1. DOXYCYCLINE. [Suspect]
     Active Substance: DOXYCYCLINE
     Indication: ACNE
     Dosage: 100 MG, 2X/DAY
     Route: 048
     Dates: start: 201504, end: 201508

REACTIONS (1)
  - Drug ineffective [Unknown]
